FAERS Safety Report 5425356-2 (Version None)
Quarter: 2007Q3

REPORT INFORMATION
  Report Type: 
  Country: None (occurrence: None)
  Receive Date: 20070824
  Receipt Date: 20070815
  Transmission Date: 20080115
  Serious: Yes (Hospitalization)
  Sender: FDA-Public Use
  Company Number: DE-GENENTECH-246356

PATIENT
  Sex: Female
  Weight: 76 kg

DRUGS (17)
  1. RITUXAN [Suspect]
     Indication: VASCULITIS
     Dosage: 375 MG/M2, UNK
     Route: 042
     Dates: start: 20070404, end: 20070417
  2. PREDNISOLONE [Concomitant]
     Indication: DRUG USE FOR UNKNOWN INDICATION
     Dosage: 20 MG, QD
     Route: 042
     Dates: start: 20070401
  3. PARACETAMOL [Concomitant]
     Indication: DRUG USE FOR UNKNOWN INDICATION
     Dosage: 1 G, UNK
     Route: 042
     Dates: start: 20070401
  4. TAVEGIL [Concomitant]
     Indication: DRUG USE FOR UNKNOWN INDICATION
     Dosage: 1 AMP, UNK
     Route: 042
     Dates: start: 20070401
  5. OPIATES [Concomitant]
     Indication: DRUG USE FOR UNKNOWN INDICATION
  6. DECORTIN H [Concomitant]
     Indication: DRUG USE FOR UNKNOWN INDICATION
     Dosage: 20 MG, UNK
  7. ASPIRIN [Concomitant]
     Indication: PROPHYLAXIS
  8. AGGRENOX [Concomitant]
     Indication: DRUG USE FOR UNKNOWN INDICATION
  9. SIMVASTATIN [Concomitant]
     Indication: DRUG USE FOR UNKNOWN INDICATION
  10. THYRONAJOD [Concomitant]
     Indication: DRUG USE FOR UNKNOWN INDICATION
     Dosage: 50 A?G, UNK
  11. TRAMADOL HCL [Concomitant]
     Indication: DRUG USE FOR UNKNOWN INDICATION
     Dosage: 200 MG, UNK
  12. LYRICA [Concomitant]
     Indication: DRUG USE FOR UNKNOWN INDICATION
  13. VIGANTOLETTEN [Concomitant]
     Indication: DRUG USE FOR UNKNOWN INDICATION
  14. CALCIUM EFFERVESCENT [Concomitant]
     Indication: DRUG USE FOR UNKNOWN INDICATION
  15. OMEPRAZOLE [Concomitant]
     Indication: DRUG USE FOR UNKNOWN INDICATION
  16. ALENDRONATE SODIUM [Concomitant]
     Indication: DRUG USE FOR UNKNOWN INDICATION
  17. NOVALGIN [Concomitant]
     Indication: DRUG USE FOR UNKNOWN INDICATION
     Dosage: UNK, PRN

REACTIONS (1)
  - TRANSIENT ISCHAEMIC ATTACK [None]
